FAERS Safety Report 11702822 (Version 1)
Quarter: 2015Q4

REPORT INFORMATION
  Report Type: Spontaneous
  Country: US (occurrence: US)
  Receive Date: 20151105
  Receipt Date: 20151105
  Transmission Date: 20160304
  Serious: Yes (Other)
  Sender: FDA-Public Use
  Company Number: US-GLAXOSMITHKLINE-US2015GSK157985

PATIENT
  Sex: Male

DRUGS (1)
  1. TANZEUM [Suspect]
     Active Substance: ALBIGLUTIDE
     Indication: TYPE 2 DIABETES MELLITUS
     Dosage: 30 MG, WE
     Dates: start: 201509

REACTIONS (5)
  - Product preparation error [Unknown]
  - Radiotherapy [Unknown]
  - Labelled drug-disease interaction medication error [Unknown]
  - Device use error [Unknown]
  - Diarrhoea [Unknown]
